FAERS Safety Report 8344524 (Version 3)
Quarter: 2013Q2

REPORT INFORMATION
  Report Type: Spontaneous
  Country: US (occurrence: US)
  Receive Date: 20120119
  Receipt Date: 20130402
  Transmission Date: 20140414
  Serious: Yes (Hospitalization, Other)
  Sender: FDA-Public Use
  Company Number: US-ROCHE-784607

PATIENT
  Age: 30 Year
  Sex: Female
  Weight: 44.49 kg

DRUGS (7)
  1. ACCUTANE [Suspect]
     Indication: ACNE
     Route: 048
     Dates: start: 199007, end: 199011
  2. ACCUTANE [Suspect]
     Route: 048
  3. ACCUTANE [Suspect]
     Route: 048
     Dates: start: 200102, end: 200104
  4. ACCUTANE [Suspect]
     Route: 048
  5. ERYTHROMYCIN [Concomitant]
  6. TCN [Concomitant]
  7. MINOCIN [Concomitant]

REACTIONS (6)
  - Intestinal obstruction [Unknown]
  - Inflammatory bowel disease [Unknown]
  - Crohn^s disease [Unknown]
  - Stress [Unknown]
  - Dry skin [Unknown]
  - Lip dry [Unknown]
